FAERS Safety Report 15488516 (Version 3)
Quarter: 2018Q4

REPORT INFORMATION
  Report Type: Spontaneous
  Country: US (occurrence: US)
  Receive Date: 20181011
  Receipt Date: 20181026
  Transmission Date: 20190205
  Serious: No
  Sender: FDA-Public Use
  Company Number: US-AMGEN-USASP2018140502

PATIENT
  Age: 61 Year
  Sex: Male
  Weight: 115.65 kg

DRUGS (1)
  1. REPATHA [Suspect]
     Active Substance: EVOLOCUMAB
     Indication: HYPERLIPIDAEMIA
     Dosage: 140 MG/ML, Q2WK
     Route: 058
     Dates: start: 20180917, end: 20181001

REACTIONS (3)
  - Pain [Recovered/Resolved]
  - Joint lock [Recovered/Resolved]
  - Musculoskeletal disorder [Recovered/Resolved]

NARRATIVE: CASE EVENT DATE: 20180917
